FAERS Safety Report 8950091 (Version 1)
Quarter: 2012Q4

REPORT INFORMATION
  Report Type: 
  Country: US (occurrence: US)
  Receive Date: 20121205
  Receipt Date: 20121205
  Transmission Date: 20130627
  Serious: No
  Sender: FDA-Public Use
  Company Number: US-ASTELLAS-2012US004905

PATIENT
  Sex: Female

DRUGS (2)
  1. TARCEVA [Suspect]
     Indication: NON-SMALL CELL LUNG CANCER STAGE IV
     Dosage: 150 mg, UID/QD
     Route: 048
  2. TARCEVA [Suspect]
     Dosage: 3/4 of a tablet
     Route: 048

REACTIONS (6)
  - Wrong technique in drug usage process [Unknown]
  - Incorrect dose administered [Unknown]
  - Fluid retention [Unknown]
  - Epistaxis [Unknown]
  - Dyspepsia [Unknown]
  - Faeces discoloured [Unknown]
